FAERS Safety Report 25024432 (Version 1)
Quarter: 2025Q1

REPORT INFORMATION
  Report Type: Spontaneous
  Country: US (occurrence: None)
  Receive Date: 20250228
  Receipt Date: 20250228
  Transmission Date: 20250409
  Serious: Yes (Hospitalization)
  Sender: FDA-CTU
  Company Number: None

PATIENT
  Age: 41 Year
  Sex: Male
  Weight: 92 kg

DRUGS (2)
  1. EMPAGLIFLOZIN [Suspect]
     Active Substance: EMPAGLIFLOZIN
     Indication: Diabetes mellitus
     Dosage: FREQUENCY : AT BEDTIME;?
     Route: 048
     Dates: start: 20231002, end: 20241005
  2. SEMAGLUTIDE [Suspect]
     Active Substance: SEMAGLUTIDE
     Route: 058
     Dates: start: 20240917, end: 20241005

REACTIONS (10)
  - Dehydration [None]
  - Diarrhoea [None]
  - Dizziness [None]
  - Feeling cold [None]
  - Vomiting [None]
  - Retching [None]
  - Fatigue [None]
  - Anion gap increased [None]
  - PCO2 increased [None]
  - Diabetic ketoacidosis [None]

NARRATIVE: CASE EVENT DATE: 20241004
